FAERS Safety Report 18098170 (Version 4)
Quarter: 2020Q3

REPORT INFORMATION
  Report Type: Report from Study
  Country: JP (occurrence: JP)
  Receive Date: 20200731
  Receipt Date: 20200916
  Transmission Date: 20201103
  Serious: Yes (Death)
  Sender: FDA-Public Use
  Company Number: JP-PFIZER INC-2020289280

PATIENT

DRUGS (11)
  1. CALCIUM FOLINATE [Suspect]
     Active Substance: LEUCOVORIN CALCIUM
     Indication: COLORECTAL CANCER METASTATIC
     Dosage: 200 MG/M2, CYCLIC (DAY 1, EVERY 2 WEEKS)
     Route: 041
  2. IRINOTECAN HCL [Suspect]
     Active Substance: IRINOTECAN HYDROCHLORIDE
     Indication: COLORECTAL CANCER METASTATIC
     Dosage: 165 MG/M2, CYCLIC (DAY 1, EVERY 2 WEEKS, 1?HOUR INFUSION)
     Route: 041
  3. PALONOSETRON. [Concomitant]
     Active Substance: PALONOSETRON HYDROCHLORIDE
     Indication: SUPPORTIVE CARE
     Dosage: 0.25?0.75 MG, DAY 1, 30?MINUTE INFUSION
     Route: 041
  4. OXALIPLATIN. [Suspect]
     Active Substance: OXALIPLATIN
     Indication: COLORECTAL CANCER METASTATIC
     Dosage: 85 MG/M2, CYCLIC (DAY 1, EVERY 2 WEEKS, 2?HOUR INFUSION)
     Route: 041
  5. FLUOROURACIL. [Suspect]
     Active Substance: FLUOROURACIL
     Indication: COLORECTAL CANCER METASTATIC
     Dosage: 3200 MG/M2, CYCLIC (DAY 1, EVERY 2 WEEKS, 48?HOUR CONTINUOUS INFUSION)
     Route: 041
  6. DEXAMETHASONE. [Concomitant]
     Active Substance: DEXAMETHASONE
     Dosage: 4 MG  (DAY 4)
     Route: 048
  7. BEVACIZUMAB. [Suspect]
     Active Substance: BEVACIZUMAB
     Indication: COLORECTAL CANCER METASTATIC
     Dosage: 5 MG/KG, CYCLIC (DAY 1, EVERY 2 WEEKS, 30? TO 90?MINUTE INFUSION)
     Route: 041
  8. DEXAMETHASONE. [Concomitant]
     Active Substance: DEXAMETHASONE
     Indication: SUPPORTIVE CARE
     Dosage: 3.3?4.95 MG, DAY 1, CYCLIC
  9. APREPITANT. [Concomitant]
     Active Substance: APREPITANT
     Indication: SUPPORTIVE CARE
     Dosage: 125 MG (DAY 1)
     Route: 048
  10. APREPITANT. [Concomitant]
     Active Substance: APREPITANT
     Dosage: 80 MG (DAYS 2 AND 3)
     Route: 048
  11. DEXAMETHASONE. [Concomitant]
     Active Substance: DEXAMETHASONE
     Dosage: 4 MG  (DAYS 2 AND 3)
     Route: 048

REACTIONS (1)
  - Death [Fatal]
